FAERS Safety Report 6196638-4 (Version None)
Quarter: 2009Q2

REPORT INFORMATION
  Report Type: 
  Country: None (occurrence: None)
  Receive Date: 20090520
  Receipt Date: 20090511
  Transmission Date: 20091009
  Serious: Yes (Other)
  Sender: FDA-Public Use
  Company Number: A0775383B

PATIENT
  Age: 60 Year
  Sex: Female
  Weight: 52.7 kg

DRUGS (4)
  1. LAPATINIB [Suspect]
     Indication: BREAST CANCER
     Dosage: 1500MG PER DAY
     Route: 048
     Dates: start: 20081217
  2. PACLITAXEL [Suspect]
     Indication: BREAST CANCER
     Dosage: 80MGM2 WEEKLY
     Route: 042
     Dates: start: 20081217
  3. AMLODIPINE [Suspect]
     Dates: end: 20090429
  4. LISINOPRIL AND HYDROCHLOROTHIAZIDE [Suspect]
     Dates: end: 20090429

REACTIONS (5)
  - DEHYDRATION [None]
  - DIARRHOEA [None]
  - DIZZINESS [None]
  - HYPOTENSION [None]
  - WEIGHT DECREASED [None]
